FAERS Safety Report 10982259 (Version 1)
Quarter: 2015Q2

REPORT INFORMATION
  Report Type: Spontaneous
  Country: US (occurrence: None)
  Receive Date: 20150401
  Receipt Date: 20150401
  Transmission Date: 20150821
  Serious: Yes (Other)
  Sender: FDA-Public Use
  Company Number: None

PATIENT
  Age: 7 Year
  Sex: Female

DRUGS (2)
  1. VYVANSE [Suspect]
     Active Substance: LISDEXAMFETAMINE DIMESYLATE
     Indication: SEIZURE
     Dosage: 1 PILL
     Route: 048
     Dates: start: 20150329, end: 20150331
  2. VYVANSE [Suspect]
     Active Substance: LISDEXAMFETAMINE DIMESYLATE
     Indication: ATTENTION DEFICIT/HYPERACTIVITY DISORDER
     Dosage: 1 PILL
     Route: 048
     Dates: start: 20150329, end: 20150331

REACTIONS (4)
  - Photophobia [None]
  - Impatience [None]
  - Hyperacusis [None]
  - Anxiety [None]

NARRATIVE: CASE EVENT DATE: 20150330
